FAERS Safety Report 4984387-7 (Version None)
Quarter: 2006Q2

REPORT INFORMATION
  Report Type: 
  Country: None (occurrence: None)
  Receive Date: 20060420
  Receipt Date: 20060412
  Transmission Date: 20061013
  Serious: Yes (Hospitalization)
  Sender: FDA-Public Use
  Company Number: 2006-04-0018

PATIENT

DRUGS (2)
  1. PEG-INTRON [Suspect]
  2. RIBAVIRIN [Suspect]

REACTIONS (1)
  - NO ADVERSE EFFECT [None]
